FAERS Safety Report 21141129 (Version 2)
Quarter: 2022Q3

REPORT INFORMATION
  Report Type: Spontaneous
  Country: ET (occurrence: ET)
  Receive Date: 20220728
  Receipt Date: 20220826
  Transmission Date: 20221027
  Serious: Yes (Other)
  Sender: FDA-Public Use
  Company Number: ET-LUPIN PHARMACEUTICALS INC.-2022-09673

PATIENT
  Age: 25 Year
  Sex: Female

DRUGS (5)
  1. ETHAMBUTOL HYDROCHLORIDE [Interacting]
     Active Substance: ETHAMBUTOL HYDROCHLORIDE
     Indication: Lymph node tuberculosis
     Dosage: UNK UNK, QD
     Route: 048
     Dates: start: 202007
  2. ISONIAZID [Interacting]
     Active Substance: ISONIAZID
     Indication: Lymph node tuberculosis
     Dosage: UNK UNK, QD
     Route: 048
     Dates: start: 202007
  3. NEXPLANON [Interacting]
     Active Substance: ETONOGESTREL
     Indication: Contraception
     Dosage: UNK IMPLANT IN THE LEFT ARM
  4. RIFAMPIN [Interacting]
     Active Substance: RIFAMPIN
     Indication: Lymph node tuberculosis
     Dosage: UNK UNK, QD
     Route: 048
     Dates: start: 202007
  5. PYRAZINAMIDE [Interacting]
     Active Substance: PYRAZINAMIDE
     Indication: Lymph node tuberculosis
     Dosage: UNK UNK, QD
     Route: 048
     Dates: start: 202007

REACTIONS (3)
  - Drug interaction [Unknown]
  - Pregnancy with implant contraceptive [Unknown]
  - Exposure during pregnancy [Unknown]

NARRATIVE: CASE EVENT DATE: 20200101
